FAERS Safety Report 5245581-3 (Version None)
Quarter: 2007Q1

REPORT INFORMATION
  Report Type: 
  Country: None (occurrence: None)
  Receive Date: 20070223
  Receipt Date: 20070215
  Transmission Date: 20070707
  Serious: Yes (Disabling)
  Sender: FDA-Public Use
  Company Number: AU-PFIZER INC-2007007317

PATIENT
  Sex: Male
  Weight: 80 kg

DRUGS (2)
  1. LIPITOR [Suspect]
     Indication: BLOOD CHOLESTEROL INCREASED
     Route: 048
     Dates: start: 20061202, end: 20070114
  2. LOSEC [Concomitant]
     Route: 048

REACTIONS (8)
  - APATHY [None]
  - ASTHENIA [None]
  - COGNITIVE DISORDER [None]
  - EXERCISE TOLERANCE DECREASED [None]
  - FATIGUE [None]
  - FLAT AFFECT [None]
  - MYALGIA [None]
  - SPEECH DISORDER [None]
